FAERS Safety Report 21446926 (Version 2)
Quarter: 2023Q1

REPORT INFORMATION
  Report Type: Report from Study
  Country: IE (occurrence: IE)
  Receive Date: 20221012
  Receipt Date: 20230125
  Transmission Date: 20230418
  Serious: Yes (Life-Threatening)
  Sender: FDA-Public Use
  Company Number: IE-NOVARTISPH-NVSC2022IE227284

PATIENT
  Sex: Female

DRUGS (1)
  1. KESIMPTA [Suspect]
     Active Substance: OFATUMUMAB
     Indication: Relapsing-remitting multiple sclerosis
     Dosage: 20 MG (ONCE WEEKLY FOR WEEKS 0,1,2 AND 4. THEN ONCE MONTHLY AFTER)
     Route: 058
     Dates: start: 20220914

REACTIONS (4)
  - Feeling abnormal [Recovered/Resolved]
  - Hypotension [Unknown]
  - Headache [Unknown]
  - Lower respiratory tract infection [Recovered/Resolved]

NARRATIVE: CASE EVENT DATE: 20220901
